FAERS Safety Report 9275137 (Version 1)
Quarter: 2013Q2

REPORT INFORMATION
  Report Type: Spontaneous
  Country: CN (occurrence: CN)
  Receive Date: 20130507
  Receipt Date: 20130507
  Transmission Date: 20140414
  Serious: Yes (Hospitalization)
  Sender: FDA-Public Use
  Company Number: CN-SANOFI-AVENTIS-2013SA043687

PATIENT
  Age: 75 Year
  Sex: Male
  Weight: 58 kg

DRUGS (3)
  1. LANTUS [Suspect]
     Indication: DIABETES MELLITUS
     Dosage: DOSE:6 UNIT(S)
     Route: 058
     Dates: start: 20130309
  2. NOVORAPID [Concomitant]
     Indication: DIABETES MELLITUS
  3. HERBAL PREPARATION [Concomitant]
     Indication: DIABETES MELLITUS
     Dosage: CHINESE PATENT MEDICINE?FORM: GRANULES

REACTIONS (3)
  - Extraocular muscle paresis [Recovering/Resolving]
  - Vision blurred [Recovering/Resolving]
  - Photophobia [Recovering/Resolving]
